FAERS Safety Report 24679300 (Version 1)
Quarter: 2024Q4

REPORT INFORMATION
  Report Type: Spontaneous
  Country: IL (occurrence: IL)
  Receive Date: 20241129
  Receipt Date: 20241129
  Transmission Date: 20250115
  Serious: Yes (Hospitalization)
  Sender: TEVA
  Company Number: IL-TEVA-VS-3268868

PATIENT
  Age: 78 Year
  Sex: Male

DRUGS (13)
  1. PREGABALIN [Suspect]
     Active Substance: PREGABALIN
     Indication: Peripheral sensorimotor neuropathy
     Route: 065
  2. AMITRIPTYLINE [Suspect]
     Active Substance: AMITRIPTYLINE
     Indication: Peripheral sensorimotor neuropathy
     Route: 065
  3. APIXABAN [Suspect]
     Active Substance: APIXABAN
     Indication: Hypertrophic cardiomyopathy
     Route: 065
  4. CLONIDINE [Suspect]
     Active Substance: CLONIDINE
     Indication: Hypertension
     Route: 065
  5. GINKGO [Suspect]
     Active Substance: GINKGO
     Indication: Product used for unknown indication
     Route: 065
  6. OXAZEPAM [Concomitant]
     Active Substance: OXAZEPAM
     Indication: Anxiety
     Route: 065
  7. METFORMIN [Concomitant]
     Active Substance: METFORMIN HYDROCHLORIDE
     Indication: Type 2 diabetes mellitus
     Route: 065
  8. FAMOTIDINE [Concomitant]
     Active Substance: FAMOTIDINE
     Indication: Gastritis erosive
     Route: 065
  9. ALLOPURINOL [Concomitant]
     Active Substance: ALLOPURINOL
     Indication: Gout
     Route: 065
  10. ATORVASTATIN [Concomitant]
     Active Substance: ATORVASTATIN
     Indication: Hyperlipidaemia
     Route: 065
  11. EMPAGLIFLOZIN [Concomitant]
     Active Substance: EMPAGLIFLOZIN
     Indication: Hypertrophic cardiomyopathy
     Route: 065
  12. BISOPROLOL [Concomitant]
     Active Substance: BISOPROLOL
     Indication: Hypertrophic cardiomyopathy
     Route: 065
  13. LERCANIDIPINE [Concomitant]
     Active Substance: LERCANIDIPINE
     Indication: Hypertension
     Route: 065

REACTIONS (3)
  - Stasis dermatitis [Unknown]
  - Drug interaction [Unknown]
  - Contraindicated product administered [Unknown]
